FAERS Safety Report 6906196-1 (Version None)
Quarter: 2010Q3

REPORT INFORMATION
  Report Type: 
  Country: None (occurrence: None)
  Receive Date: 20100804
  Receipt Date: 20100714
  Transmission Date: 20110219
  Serious: Yes (Hospitalization)
  Sender: FDA-Public Use
  Company Number: PHFR2010IE01411

PATIENT
  Sex: Male

DRUGS (1)
  1. CLOZARIL [Suspect]
     Indication: SCHIZOPHRENIA
     Dosage: UNK
     Dates: start: 19930616

REACTIONS (6)
  - ASTHENIA [None]
  - CATATONIA [None]
  - CORONARY ARTERY BYPASS [None]
  - MALAISE [None]
  - MENTAL DISORDER [None]
  - VASCULAR GRAFT [None]
